FAERS Safety Report 5000444-3 (Version None)
Quarter: 2006Q1

REPORT INFORMATION
  Report Type: 
  Country: None (occurrence: None)
  Receive Date: 20060315
  Receipt Date: 20060213
  Transmission Date: 20060701
  Serious: Yes (Other)
  Sender: FDA-Public Use
  Company Number: 436010

PATIENT
  Age: 63 Year
  Sex: Female
  Weight: 49.9 kg

DRUGS (1)
  1. BONIVA [Suspect]
     Indication: OSTEOPENIA
     Dosage: 150 MG 1 PER MONTH ORAL
     Route: 048
     Dates: start: 20060201

REACTIONS (2)
  - ARTHRALGIA [None]
  - DEPRESSION [None]
